FAERS Safety Report 6687446-6 (Version None)
Quarter: 2010Q2

REPORT INFORMATION
  Report Type: 
  Country: None (occurrence: None)
  Receive Date: 20100419
  Receipt Date: 20100412
  Transmission Date: 20101027
  Serious: Yes (Death, Hospitalization, Other)
  Sender: FDA-Public Use
  Company Number: PHHO2009BE06548

PATIENT
  Sex: Male

DRUGS (6)
  1. AFINITOR [Suspect]
     Indication: TRANSITIONAL CELL CARCINOMA
     Dosage: 10 UNK, UNK
     Dates: end: 20090516
  2. DAFALGAN [Concomitant]
     Indication: PAIN
     Dosage: 4 G, UNK
     Route: 048
  3. MORPHINE [Concomitant]
     Indication: PAIN
     Dosage: 20 UNK, BID
     Route: 048
  4. DURAGESIC-100 [Concomitant]
     Indication: PAIN
     Dosage: 100 UG, UNK
  5. XANAX [Concomitant]
     Indication: ANXIETY
     Dosage: UNK
     Route: 048
  6. MOVICOL [Concomitant]
     Indication: PAIN
     Dosage: UNK

REACTIONS (29)
  - ABDOMINAL PAIN [None]
  - ASCITES [None]
  - ATELECTASIS [None]
  - CATHETER PLACEMENT [None]
  - CONFUSIONAL STATE [None]
  - DEHYDRATION [None]
  - HYDRONEPHROSIS [None]
  - HYPERHIDROSIS [None]
  - HYPERKALAEMIA [None]
  - LYMPHADENOPATHY [None]
  - LYMPHOCYTE COUNT DECREASED [None]
  - MALIGNANT NEOPLASM PROGRESSION [None]
  - NEPHROSTOMY [None]
  - NEUTROPHIL COUNT DECREASED [None]
  - OEDEMA PERIPHERAL [None]
  - PLEURAL EFFUSION [None]
  - PULMONARY EMBOLISM [None]
  - PYELOCALIECTASIS [None]
  - PYREXIA [None]
  - RENAL FAILURE ACUTE [None]
  - RENAL MASS [None]
  - SEPSIS [None]
  - SPINAL OSTEOARTHRITIS [None]
  - TACHYCARDIA [None]
  - THROMBOCYTOPENIA [None]
  - TRANSITIONAL CELL CARCINOMA [None]
  - TUMOUR NECROSIS [None]
  - URETERIC DILATATION [None]
  - URINARY TRACT OBSTRUCTION [None]
